FAERS Safety Report 20510748 (Version 3)
Quarter: 2022Q1

REPORT INFORMATION
  Report Type: Report from Study
  Country: US (occurrence: US)
  Receive Date: 20220224
  Receipt Date: 20220316
  Transmission Date: 20220423
  Serious: Yes (Hospitalization, Other)
  Sender: FDA-Public Use
  Company Number: US-GILEAD-2022-0570724

PATIENT
  Age: 17 Year
  Sex: Female

DRUGS (13)
  1. AZTREONAM LYSINE [Suspect]
     Active Substance: AZTREONAM LYSINE
     Indication: Pseudomonas infection
     Dosage: 75 MG, TID, 28/28
     Route: 055
  2. AZTREONAM LYSINE [Suspect]
     Active Substance: AZTREONAM LYSINE
     Indication: Cystic fibrosis
  3. TOBRAMYCIN SULFATE [Concomitant]
     Active Substance: TOBRAMYCIN SULFATE
  4. VIMPAT [Concomitant]
     Active Substance: LACOSAMIDE
  5. PHENOBARBITAL [Concomitant]
     Active Substance: PHENOBARBITAL
  6. DIASTATIN [Concomitant]
  7. BACLOFEN [Concomitant]
     Active Substance: BACLOFEN
  8. FAMOTIDINE [Concomitant]
     Active Substance: FAMOTIDINE
  9. CLONAZEPAM [Concomitant]
     Active Substance: CLONAZEPAM
  10. OMEPRAZOLE [Concomitant]
     Active Substance: OMEPRAZOLE
  11. MIRALAX [Concomitant]
     Active Substance: POLYETHYLENE GLYCOL 3350
  12. CULTURELLE [Concomitant]
     Active Substance: LACTOBACILLUS RHAMNOSUS
  13. ZONISAMIDE [Concomitant]
     Active Substance: ZONISAMIDE

REACTIONS (2)
  - Speech disorder [Not Recovered/Not Resolved]
  - Pneumonia [Not Recovered/Not Resolved]

NARRATIVE: CASE EVENT DATE: 20220101
